FAERS Safety Report 14967287 (Version 1)
Quarter: 2018Q2

REPORT INFORMATION
  Report Type: Spontaneous
  Country: ES (occurrence: ES)
  Receive Date: 20180604
  Receipt Date: 20180604
  Transmission Date: 20180711
  Serious: Yes (Hospitalization, Other)
  Sender: FDA-Public Use
  Company Number: ES-CHEPLA-C20170934

PATIENT
  Age: 35 Year
  Sex: Male

DRUGS (2)
  1. ALL-TRANS RETINOIC ACID (ATRA) [Suspect]
     Active Substance: TRETINOIN
     Indication: ACUTE PROMYELOCYTIC LEUKAEMIA
     Route: 048
  2. IDARUBICIN [Suspect]
     Active Substance: IDARUBICIN
     Indication: ACUTE PROMYELOCYTIC LEUKAEMIA
     Dosage: 12 MG/M^2 ON DAYS 2, 4, 6 AND 8
     Route: 042

REACTIONS (2)
  - Cardiac failure congestive [Recovered/Resolved]
  - Myocarditis [Recovered/Resolved]
